FAERS Safety Report 21281981 (Version 1)
Quarter: 2022Q3

REPORT INFORMATION
  Report Type: Spontaneous
  Country: US (occurrence: US)
  Receive Date: 20220901
  Receipt Date: 20220901
  Transmission Date: 20221027
  Serious: No
  Sender: FDA-Public Use
  Company Number: US-ABBVIE-22K-163-4502142-00

PATIENT
  Age: 61 Year
  Sex: Female
  Weight: 76.272 kg

DRUGS (2)
  1. HUMIRA [Suspect]
     Active Substance: ADALIMUMAB
     Indication: Psoriasis
     Route: 058
  2. OTEZLA [Suspect]
     Active Substance: APREMILAST
     Indication: Product used for unknown indication
     Route: 065

REACTIONS (5)
  - Therapeutic product effect decreased [Not Recovered/Not Resolved]
  - Psoriasis [Unknown]
  - COVID-19 [Recovered/Resolved]
  - COVID-19 [Unknown]
  - Headache [Unknown]

NARRATIVE: CASE EVENT DATE: 20210501
